FAERS Safety Report 12312085 (Version 1)
Quarter: 2016Q2

REPORT INFORMATION
  Report Type: Spontaneous
  Country: US (occurrence: US)
  Receive Date: 20160427
  Receipt Date: 20160427
  Transmission Date: 20160815
  Serious: No
  Sender: FDA-Public Use
  Company Number: US-TEIKOKU PHARMA USA-TPU2016-00249

PATIENT
  Sex: Female
  Weight: 145.28 kg

DRUGS (2)
  1. LIDOCAINE PATCH [Suspect]
     Active Substance: LIDOCAINE
     Indication: POST HERPETIC NEURALGIA
     Route: 061
     Dates: start: 2014
  2. ANOTHER MEDICATION FOR SHINGLES [Concomitant]
     Indication: HERPES ZOSTER

REACTIONS (1)
  - Inappropriate schedule of drug administration [Not Recovered/Not Resolved]
